FAERS Safety Report 16058059 (Version 2)
Quarter: 2019Q1

REPORT INFORMATION
  Report Type: Spontaneous
  Country: US (occurrence: US)
  Receive Date: 20190311
  Receipt Date: 20190319
  Transmission Date: 20190418
  Serious: Yes (Other)
  Sender: FDA-Public Use
  Company Number: US-AMREGENT-20190373

PATIENT
  Age: 32 Year
  Sex: Female
  Weight: 99.79 kg

DRUGS (1)
  1. INJECTAFER [Suspect]
     Active Substance: FERRIC CARBOXYMALTOSE
     Dosage: 750 MG
     Route: 042
     Dates: start: 201902, end: 201902

REACTIONS (2)
  - Unresponsive to stimuli [Unknown]
  - Dyskinesia [Unknown]

NARRATIVE: CASE EVENT DATE: 201902
